FAERS Safety Report 18517254 (Version 3)
Quarter: 2020Q4

REPORT INFORMATION
  Report Type: Spontaneous
  Country: US (occurrence: US)
  Receive Date: 20201118
  Receipt Date: 20201208
  Transmission Date: 20210114
  Serious: Yes (Hospitalization, Other)
  Sender: FDA-Public Use
  Company Number: US-PFIZER INC-2020451261

PATIENT
  Age: 73 Year
  Sex: Male
  Weight: 97.98 kg

DRUGS (2)
  1. XELJANZ [Suspect]
     Active Substance: TOFACITINIB CITRATE
     Indication: PSORIATIC ARTHROPATHY
  2. XELJANZ [Suspect]
     Active Substance: TOFACITINIB CITRATE
     Indication: PSORIASIS
     Dosage: 10 MG, 2X/DAY
     Route: 048
     Dates: start: 2019, end: 202006

REACTIONS (5)
  - Cellulitis [Recovered/Resolved with Sequelae]
  - Skin injury [Unknown]
  - Eczema [Unknown]
  - Rash [Unknown]
  - Condition aggravated [Unknown]
